FAERS Safety Report 4774337-0 (Version None)
Quarter: 2005Q3

REPORT INFORMATION
  Report Type: 
  Country: None (occurrence: None)
  Receive Date: 20050921
  Receipt Date: 20050909
  Transmission Date: 20060218
  Serious: Yes (Hospitalization)
  Sender: FDA-Public Use
  Company Number: JP-JNJFOC-20050902644

PATIENT
  Sex: Female
  Weight: 62 kg

DRUGS (24)
  1. REMICADE [Suspect]
     Route: 042
  2. REMICADE [Suspect]
     Route: 042
  3. REMICADE [Suspect]
     Indication: RHEUMATOID ARTHRITIS
     Route: 042
  4. METHOTREXATE [Concomitant]
     Route: 048
  5. METHOTREXATE [Concomitant]
     Route: 048
  6. METHOTREXATE [Concomitant]
     Route: 048
  7. METHOTREXATE [Concomitant]
     Indication: RHEUMATOID ARTHRITIS
     Route: 048
  8. BETAMETHASONE SODIUM PHOSPHATE [Concomitant]
     Indication: RHEUMATOID ARTHRITIS
     Route: 048
  9. RIDAURA [Concomitant]
     Indication: RHEUMATOID ARTHRITIS
     Route: 048
  10. AZULFIDINE EN-TABS [Concomitant]
     Route: 048
  11. VOLTAREN [Concomitant]
     Indication: RHEUMATOID ARTHRITIS
     Route: 048
  12. FOLIAMIN [Concomitant]
     Route: 048
  13. LEUCOVORIN [Concomitant]
     Route: 048
  14. CYTOTEC [Concomitant]
     Route: 048
  15. JUVELA NICOTINATE [Concomitant]
     Route: 048
  16. CYANOCOBALAMIN [Concomitant]
     Route: 048
  17. HALCION [Concomitant]
     Route: 048
  18. EVAMYL [Concomitant]
     Route: 048
  19. GASTER [Concomitant]
     Route: 048
  20. ALLOID G [Concomitant]
     Route: 048
  21. MYSLEE [Concomitant]
     Route: 048
  22. BENET [Concomitant]
     Route: 048
  23. FERROMIA [Concomitant]
     Route: 048
  24. ADRENAL HORMONE PREPARATIONS [Concomitant]
     Indication: RHEUMATOID ARTHRITIS
     Route: 048

REACTIONS (2)
  - PLEURAL EFFUSION [None]
  - TUBERCULOUS PLEURISY [None]
